FAERS Safety Report 4543860-6 (Version None)
Quarter: 2004Q4

REPORT INFORMATION
  Report Type: 
  Country: None (occurrence: None)
  Receive Date: 20041229
  Receipt Date: 20041229
  Transmission Date: 20050328
  Serious: Yes (Life-Threatening, Hospitalization, Disabling, Congenital Anomaly)
  Sender: FDA-Public Use
  Company Number: None

PATIENT
  Age: 14 Month
  Sex: Female
  Weight: 8.15 kg

DRUGS (1)
  1. SYNAGIS [Suspect]
     Indication: CARDIAC DISORDER
     Dosage: 125 MG IM
     Route: 030

REACTIONS (1)
  - EMBOLIC STROKE [None]
